FAERS Safety Report 25097241 (Version 2)
Quarter: 2025Q1

REPORT INFORMATION
  Report Type: Spontaneous
  Country: NO (occurrence: NO)
  Receive Date: 20250320
  Receipt Date: 20250322
  Transmission Date: 20250409
  Serious: Yes (Life-Threatening, Other)
  Sender: AMGEN
  Company Number: None

PATIENT
  Age: 61 Year
  Sex: Female
  Weight: 68 kg

DRUGS (2)
  1. ADALIMUMAB [Suspect]
     Active Substance: ADALIMUMAB
     Indication: Crohn^s disease
     Dosage: UNK UNK, Q2WK (L04AB04) (INJECTION EVERY 14 DAYS. FIRST INJECTION 40 MG X 4, THEN)
     Route: 058
     Dates: start: 202403, end: 202406
  2. NEXIUM [Suspect]
     Active Substance: ESOMEPRAZOLE MAGNESIUM
     Indication: Gastrooesophageal reflux disease
     Dosage: 20 MILLIGRAM, QD (A02BC05)
     Route: 065
     Dates: start: 202402

REACTIONS (11)
  - Thrombocytopenia [Recovering/Resolving]
  - Dizziness [Unknown]
  - Mucosal disorder [Unknown]
  - Headache [Unknown]
  - Middle ear effusion [Unknown]
  - Hypoacusis [Unknown]
  - Insomnia [Unknown]
  - Sinusitis [Unknown]
  - Lung disorder [Unknown]
  - Abdominal pain [Unknown]
  - Skin discolouration [Unknown]

NARRATIVE: CASE EVENT DATE: 20240501
